FAERS Safety Report 24269272 (Version 1)
Quarter: 2024Q3

REPORT INFORMATION
  Report Type: Spontaneous
  Country: US (occurrence: None)
  Receive Date: 20240830
  Receipt Date: 20240830
  Transmission Date: 20241017
  Serious: Yes (Hospitalization)
  Sender: Public
  Company Number: None

PATIENT
  Sex: Female

DRUGS (4)
  1. AMBRISENTAN [Suspect]
     Active Substance: AMBRISENTAN
     Indication: Pulmonary arterial hypertension
     Dosage: FREQUENCY : DAILY;?
     Route: 048
     Dates: start: 202401
  2. SOD CH LOR SDV ,:SOML/FTV), [Concomitant]
  3. PU\.1 P CADD LEGACY [Concomitant]
  4. EPOPROSTENOL SDV G-VELETRI [Concomitant]

REACTIONS (2)
  - Dyspnoea [None]
  - Pain in jaw [None]
